FAERS Safety Report 20719343 (Version 1)
Quarter: 2022Q2

REPORT INFORMATION
  Report Type: Spontaneous
  Country: US (occurrence: US)
  Receive Date: 20220418
  Receipt Date: 20220418
  Transmission Date: 20220721
  Serious: No
  Sender: FDA-Public Use
  Company Number: US-DSJP-DSU-2022-113278AA

PATIENT
  Sex: Male

DRUGS (4)
  1. EFFIENT [Suspect]
     Active Substance: PRASUGREL HYDROCHLORIDE
     Indication: Stent placement
     Dosage: 10 MG, QD
     Route: 065
     Dates: start: 2017
  2. EFFIENT [Suspect]
     Active Substance: PRASUGREL HYDROCHLORIDE
     Dosage: 5 MG, QD
     Route: 065
  3. PRASUGREL HYDROCHLORIDE [Suspect]
     Active Substance: PRASUGREL HYDROCHLORIDE
     Indication: Stent placement
     Dosage: 10 MG, QD
     Route: 065
     Dates: start: 2017
  4. ASPIRIN [Suspect]
     Active Substance: ASPIRIN
     Indication: Stent placement
     Dosage: UNK
     Route: 065
     Dates: start: 2017

REACTIONS (4)
  - Gastrointestinal disorder [Recovered/Resolved]
  - Lip swelling [Unknown]
  - Eye swelling [Unknown]
  - Rash [Unknown]
